FAERS Safety Report 9311668 (Version 2)
Quarter: 2013Q1

REPORT INFORMATION
  Report Type: Spontaneous
  Country: GB (occurrence: None)
  Receive Date: 20130221
  Receipt Date: 20130311
  Transmission Date: 20140127
  Serious: Yes (Hospitalization)
  Sender: FDA-Public Use
  Company Number: 2013-02289

PATIENT
  Age: 67 Year
  Sex: Female

DRUGS (6)
  1. METFORMIN HYDROCHLORIDE [Suspect]
     Indication: PRODUCT USED FOR UNKNOWN INDICATION
  2. LEVEMIR (INSULIN DETEMIR) [Suspect]
     Indication: TYPE 1 DIABETES MELLITUS
     Dates: start: 200510
  3. NOVORAPID [Suspect]
     Indication: TYPE 1 DIABETES MELLITUS
     Dates: start: 200503
  4. SIMVASTATIN (SIMVASTATIN) [Concomitant]
  5. INDAPAMIDE (INDAPAMIDE) [Concomitant]
  6. LETROZOLE (LETROZOLE) [Concomitant]

REACTIONS (8)
  - Ketoacidosis [None]
  - Loss of consciousness [None]
  - Hypoglycaemia [None]
  - Device difficult to use [None]
  - Stress [None]
  - Balance disorder [None]
  - Vomiting [None]
  - Incorrect dose administered by device [None]
